FAERS Safety Report 5196710-1 (Version None)
Quarter: 2006Q4

REPORT INFORMATION
  Report Type: 
  Country: None (occurrence: None)
  Receive Date: 20061228
  Receipt Date: 20061228
  Transmission Date: 20070319
  Serious: No
  Sender: FDA-Public Use
  Company Number: None

PATIENT
  Age: 55 Year
  Sex: Male
  Weight: 129.2752 kg

DRUGS (1)
  1. CRESTOR [Suspect]
     Dosage: 5 MG DAILY
     Dates: start: 20060804, end: 20061208

REACTIONS (5)
  - ASTHENIA [None]
  - BLOOD CREATINE PHOSPHOKINASE INCREASED [None]
  - CONVULSION [None]
  - MUSCLE SPASMS [None]
  - PAIN IN EXTREMITY [None]
